APPROVED DRUG PRODUCT: OXCARBAZEPINE
Active Ingredient: OXCARBAZEPINE
Strength: 300MG
Dosage Form/Route: TABLET;ORAL
Application: A207717 | Product #002 | TE Code: AB
Applicant: RUBICON RESEARCH LTD
Approved: Mar 5, 2024 | RLD: No | RS: No | Type: RX